FAERS Safety Report 19243674 (Version 2)
Quarter: 2021Q2

REPORT INFORMATION
  Report Type: Spontaneous
  Country: US (occurrence: US)
  Receive Date: 20210511
  Receipt Date: 20210521
  Transmission Date: 20210717
  Serious: Yes (Other)
  Sender: FDA-Public Use
  Company Number: US-TAKEDA-2021TUS029455

PATIENT
  Age: 48 Year
  Sex: Male
  Weight: 113 kg

DRUGS (2)
  1. COLCRYS [Suspect]
     Active Substance: COLCHICINE
     Indication: FAMILIAL MEDITERRANEAN FEVER
     Dosage: 0.6 MILLIGRAM, BID
     Route: 065
     Dates: start: 20210504
  2. COLCRYS [Suspect]
     Active Substance: COLCHICINE
     Dosage: 0.6 MILLIGRAM, QD
     Route: 065
     Dates: start: 202105

REACTIONS (18)
  - Condition aggravated [Unknown]
  - Nodule [Recovered/Resolved]
  - Hot flush [Recovering/Resolving]
  - Abdominal distension [Recovering/Resolving]
  - Stress [Unknown]
  - Feeling abnormal [Unknown]
  - Gastrointestinal pain [Unknown]
  - Chest pain [Recovering/Resolving]
  - Drug ineffective [Unknown]
  - Abdominal pain [Recovering/Resolving]
  - Pericarditis [Recovering/Resolving]
  - Migraine [Unknown]
  - Muscle spasms [Recovering/Resolving]
  - Swelling [Recovered/Resolved]
  - Weight decreased [Unknown]
  - Pyrexia [Recovering/Resolving]
  - Blood pressure increased [Not Recovered/Not Resolved]
  - Skin mass [Recovered/Resolved]

NARRATIVE: CASE EVENT DATE: 202105
